FAERS Safety Report 11722766 (Version 2)
Quarter: 2015Q4

REPORT INFORMATION
  Report Type: Spontaneous
  Country: BE (occurrence: BE)
  Receive Date: 20151111
  Receipt Date: 20151119
  Transmission Date: 20160304
  Serious: Yes (Other)
  Sender: FDA-Public Use
  Company Number: BE-BAYER-2015-457726

PATIENT
  Sex: Male

DRUGS (4)
  1. DEGARELIX [Concomitant]
     Active Substance: DEGARELIX
     Dosage: UNK
  2. XOFIGO [Suspect]
     Active Substance: RADIUM RA-223 DICHLORIDE
     Indication: PROSTATE CANCER METASTATIC
     Dosage: UNK
     Dates: start: 2015, end: 2015
  3. XGEVA [Concomitant]
     Active Substance: DENOSUMAB
  4. XOFIGO [Suspect]
     Active Substance: RADIUM RA-223 DICHLORIDE
     Indication: PROSTATE CANCER METASTATIC
     Dosage: UNK
     Dates: start: 20150929, end: 20150929

REACTIONS (7)
  - Nausea [None]
  - Helicobacter infection [Recovering/Resolving]
  - Diarrhoea [None]
  - Gastric ulcer helicobacter [Recovering/Resolving]
  - Duodenal ulcer [Recovering/Resolving]
  - Vomiting [None]
  - Weight decreased [None]

NARRATIVE: CASE EVENT DATE: 201510
